FAERS Safety Report 25428160 (Version 2)
Quarter: 2025Q3

REPORT INFORMATION
  Report Type: Spontaneous
  Country: US (occurrence: US)
  Receive Date: 20250612
  Receipt Date: 20250812
  Transmission Date: 20251020
  Serious: No
  Sender: PHARMACOSMOS A/S
  Company Number: US-NEBO-695211

PATIENT
  Age: 70 Year
  Sex: Male

DRUGS (1)
  1. COSELA [Suspect]
     Active Substance: TRILACICLIB DIHYDROCHLORIDE
     Indication: Neoplasm malignant
     Dates: start: 20250507, end: 20250507

REACTIONS (1)
  - Injection site pain [Unknown]
